FAERS Safety Report 23550141 (Version 1)
Quarter: 2024Q1

REPORT INFORMATION
  Report Type: Spontaneous
  Country: US (occurrence: None)
  Receive Date: 20240220
  Receipt Date: 20240220
  Transmission Date: 20240409
  Serious: Yes (Disabling)
  Sender: FDA-Public Use
  Company Number: None

PATIENT
  Age: 65 Year
  Sex: Female
  Weight: 49.5 kg

DRUGS (3)
  1. LEVOFLOXACIN [Suspect]
     Active Substance: LEVOFLOXACIN
     Indication: Pneumonia
     Dosage: 1 TABLET DAILY ORAL
     Route: 048
     Dates: start: 20240201, end: 20240207
  2. VITAMIN D NOS [Concomitant]
     Active Substance: VITAMIN D NOS
  3. PEPCID [Concomitant]
     Active Substance: FAMOTIDINE

REACTIONS (4)
  - Urine output increased [None]
  - Extrasystoles [None]
  - Dizziness [None]
  - Clumsiness [None]

NARRATIVE: CASE EVENT DATE: 20240209
